FAERS Safety Report 6460838-6 (Version None)
Quarter: 2009Q4

REPORT INFORMATION
  Report Type: 
  Country: None (occurrence: None)
  Receive Date: 20091130
  Receipt Date: 20091116
  Transmission Date: 20100525
  Serious: Yes (Other)
  Sender: FDA-Public Use
  Company Number: GB-CELGENEUS-167-20484-09111581

PATIENT
  Sex: Female
  Weight: 1.75 kg

DRUGS (17)
  1. INNOHEP [Suspect]
     Route: 064
     Dates: start: 20020812, end: 20030206
  2. INNOHEP [Suspect]
  3. FUROSEMIDE [Concomitant]
     Route: 064
  4. PROCHLORPERAZINE [Concomitant]
     Route: 065
  5. FOLIC ACID [Concomitant]
     Route: 064
  6. FERROUS SULFATE TAB [Concomitant]
     Route: 064
  7. PARACETAMOL [Concomitant]
     Route: 064
  8. AMOXICILLIN [Concomitant]
     Route: 064
     Dates: start: 20030204, end: 20030207
  9. CEPHALEXIN [Concomitant]
     Route: 064
     Dates: start: 20030203, end: 20030206
  10. RANITIDINE [Concomitant]
     Route: 064
     Dates: start: 20030205, end: 20030206
  11. METOCLOPRAMIDE [Concomitant]
     Route: 064
     Dates: start: 20030206, end: 20030206
  12. SODIUM CITRATE [Concomitant]
     Route: 064
     Dates: start: 20030206, end: 20030206
  13. AUGMENTIN [Concomitant]
     Route: 064
     Dates: start: 20030206, end: 20030206
  14. METARAMINOL BITARTRATE [Concomitant]
     Route: 064
     Dates: start: 20030206, end: 20030206
  15. BUPIVACAINE [Concomitant]
     Route: 064
     Dates: start: 20030206, end: 20030206
  16. DIAMORPHINE [Concomitant]
     Route: 064
     Dates: start: 20030206, end: 20030206
  17. ACETYLSALICYLIC ACID [Concomitant]
     Route: 064
     Dates: start: 19990812

REACTIONS (2)
  - DRUG EXPOSURE DURING PREGNANCY [None]
  - PREMATURE BABY [None]
